FAERS Safety Report 8481900-2 (Version None)
Quarter: 2012Q3

REPORT INFORMATION
  Report Type: 
  Country: None (occurrence: None)
  Receive Date: 20120702
  Receipt Date: 20120524
  Transmission Date: 20120928
  Serious: Yes (Other)
  Sender: FDA-Public Use
  Company Number: JP-ASTRAZENECA-2011SE45339

PATIENT
  Age: 17 Year
  Sex: Male
  Weight: 70 kg

DRUGS (22)
  1. RELAXIN [Concomitant]
     Indication: ANAESTHESIA PROCEDURE
     Route: 042
     Dates: start: 20110620, end: 20110620
  2. ISOTONIC SODIUM CHLORIDE SOLUTION [Suspect]
     Route: 042
     Dates: start: 20110620, end: 20110620
  3. POLARAMINE [Concomitant]
     Route: 042
     Dates: start: 20110620, end: 20110620
  4. ROPIVACAINE HYDROCHLORIDE [Suspect]
     Dosage: 0.375%, 4 ML/HR CONTINUOUSLY
     Route: 008
     Dates: start: 20110620, end: 20110620
  5. ATROPINE [Suspect]
     Route: 042
     Dates: start: 20110620, end: 20110620
  6. NEOPHYLLIN INJECTION [Concomitant]
     Route: 042
     Dates: start: 20110620, end: 20110620
  7. XYLOCAINE [Suspect]
     Indication: ANALGESIC THERAPY
     Route: 041
     Dates: start: 20110620, end: 20110620
  8. ROPIVACAINE HYDROCHLORIDE [Suspect]
     Indication: ANALGESIC THERAPY
     Route: 008
     Dates: start: 20110620, end: 20110620
  9. CEFAZOLIN SODIUM [Suspect]
     Route: 042
     Dates: start: 20110620, end: 20110620
  10. MEPIVACAINE HCL [Suspect]
     Indication: ANALGESIC THERAPY
     Route: 008
     Dates: start: 20110620, end: 20110620
  11. MEPIVACAINE HCL [Suspect]
     Dosage: 20MG/ML
     Route: 008
  12. DIPRIVAN [Suspect]
     Indication: GENERAL ANAESTHESIA
     Dosage: 10MG/ML, 1200MG/HR
     Route: 042
     Dates: start: 20110620
  13. DIPRIVAN [Suspect]
     Route: 042
     Dates: start: 20110620, end: 20110620
  14. FENTANYL [Suspect]
     Indication: ANAESTHESIA PROCEDURE
     Route: 042
     Dates: start: 20110620, end: 20110620
  15. FENTANYL [Suspect]
     Route: 042
     Dates: start: 20110620, end: 20110620
  16. ULTIVA [Suspect]
     Indication: ANAESTHESIA PROCEDURE
     Route: 042
     Dates: start: 20110620, end: 20110620
  17. ULTIVA [Suspect]
     Dosage: 0.5MG/HR
     Route: 042
     Dates: start: 20110620, end: 20110620
  18. FLURBIPROFEN [Suspect]
     Indication: ANALGESIC THERAPY
     Route: 042
     Dates: start: 20110620, end: 20110620
  19. PHYSIO 140 [Suspect]
     Route: 042
     Dates: start: 20110620, end: 20110620
  20. HYDROCORTISONE SODIUM SUCCINATE [Concomitant]
     Route: 065
  21. SALINHES [Suspect]
     Route: 042
     Dates: start: 20110620, end: 20110620
  22. ROCURONIUM BROMIDE [Concomitant]
     Indication: ANAESTHESIA PROCEDURE
     Route: 042
     Dates: start: 20110620, end: 20110620

REACTIONS (4)
  - RASH [None]
  - MECHANICAL VENTILATION COMPLICATION [None]
  - AIRWAY PEAK PRESSURE INCREASED [None]
  - GENERALISED ERYTHEMA [None]
